FAERS Safety Report 22823704 (Version 5)
Quarter: 2023Q4

REPORT INFORMATION
  Report Type: Spontaneous
  Country: US (occurrence: US)
  Receive Date: 20230815
  Receipt Date: 20231218
  Transmission Date: 20240110
  Serious: Yes (Other)
  Sender: FDA-Public Use
  Company Number: US-PFIZER INC-PV202300139127

PATIENT
  Age: 41 Year
  Sex: Female

DRUGS (1)
  1. XELJANZ XR [Suspect]
     Active Substance: TOFACITINIB CITRATE
     Dosage: 22 MG

REACTIONS (6)
  - Haematochezia [Unknown]
  - Headache [Unknown]
  - Toothache [Unknown]
  - Gingival pain [Unknown]
  - Inflammation [Unknown]
  - Rash [Unknown]
